FAERS Safety Report 7136487-3 (Version None)
Quarter: 2010Q4

REPORT INFORMATION
  Report Type: 
  Country: None (occurrence: None)
  Receive Date: 20101206
  Receipt Date: 20061203
  Transmission Date: 20110411
  Serious: Yes (Death)
  Sender: FDA-Public Use
  Company Number: CA-ACTELION-A-CH2006-13800

PATIENT
  Age: 55 Year
  Sex: Female

DRUGS (2)
  1. TRACLEER [Suspect]
     Indication: PULMONARY HYPERTENSION
     Dosage: 125 MG, BID
     Route: 048
  2. OXYGEN [Concomitant]

REACTIONS (6)
  - DEATH [None]
  - DILATATION ATRIAL [None]
  - DILATATION VENTRICULAR [None]
  - PARATRACHEAL LYMPHADENOPATHY [None]
  - PERICARDIAL EFFUSION [None]
  - PLEURAL EFFUSION [None]
